FAERS Safety Report 9615283 (Version 2)
Quarter: 2013Q4

REPORT INFORMATION
  Report Type: Spontaneous
  Country: US (occurrence: US)
  Receive Date: 20131011
  Receipt Date: 20131011
  Transmission Date: 20140711
  Serious: No
  Sender: FDA-Public Use
  Company Number: US-PURDUE-USA-2012-0097082

PATIENT
  Sex: Male
  Weight: 95.24 kg

DRUGS (5)
  1. BUTRANS [Suspect]
     Indication: PAIN
     Dosage: 5 MCG, UNK
     Route: 062
     Dates: start: 20121130, end: 20121213
  2. CELEXA                             /00582602/ [Concomitant]
     Indication: PRODUCT USED FOR UNKNOWN INDICATION
  3. XANAX [Concomitant]
     Indication: PRODUCT USED FOR UNKNOWN INDICATION
  4. HYDROCODONE [Concomitant]
     Indication: PAIN
     Dosage: 10/325, QID PRN
     Route: 048
     Dates: start: 20120813
  5. ZANAFLEX [Concomitant]
     Indication: MUSCLE SPASMS
     Dosage: 4 MG, TID PRN
     Route: 065
     Dates: start: 20120517

REACTIONS (3)
  - Application site irritation [Unknown]
  - Headache [Unknown]
  - Nausea [Recovered/Resolved]
